FAERS Safety Report 23428795 (Version 3)
Quarter: 2024Q1

REPORT INFORMATION
  Report Type: Spontaneous
  Country: US (occurrence: US)
  Receive Date: 20240122
  Receipt Date: 20240314
  Transmission Date: 20240410
  Serious: Yes (Other)
  Sender: FDA-Public Use
  Company Number: US-PFIZER INC-PV202400007613

PATIENT
  Age: 73 Year
  Sex: Female
  Weight: 82.993 kg

DRUGS (5)
  1. IBRANCE [Suspect]
     Active Substance: PALBOCICLIB
     Indication: Breast cancer female
     Dosage: TAKE 1 CAPSULE BY ORAL ROUTE DAILY FOR 21 DAYS ON AND 7 DAYS OFF EVERY 28 DAYS
     Route: 048
  2. IBRANCE [Suspect]
     Active Substance: PALBOCICLIB
     Dosage: 100 MG, DAILY
     Route: 048
     Dates: start: 20211112, end: 20220804
  3. IBRANCE [Suspect]
     Active Substance: PALBOCICLIB
     Dosage: 1 (125 MG) CAPSULE ORAL DAILY
     Route: 048
     Dates: start: 202207, end: 20220804
  4. LETROZOLE [Concomitant]
     Active Substance: LETROZOLE
     Dosage: UNK
  5. ZARXIO [Concomitant]
     Active Substance: FILGRASTIM-SNDZ
     Dosage: UNK

REACTIONS (3)
  - Second primary malignancy [Unknown]
  - Colon cancer [Unknown]
  - Back pain [Unknown]
